FAERS Safety Report 16642435 (Version 9)
Quarter: 2020Q3

REPORT INFORMATION
  Report Type: Report from Study
  Country: JP (occurrence: JP)
  Receive Date: 20190729
  Receipt Date: 20200720
  Transmission Date: 20201102
  Serious: Yes (Death, Hospitalization, Other)
  Sender: FDA-Public Use
  Company Number: JP-ASTELLAS-2018JP002847

PATIENT
  Age: 81 Year
  Sex: Female
  Weight: 45 kg

DRUGS (84)
  1. ASP2215 [Suspect]
     Active Substance: GILTERITINIB
     Route: 048
     Dates: start: 20180314, end: 20190722
  2. REMIFENTANIL [Concomitant]
     Active Substance: REMIFENTANIL
     Indication: DUODENAL PERFORATION
     Dosage: UNK UNK, UNKNOWN FREQ.
     Route: 042
     Dates: start: 20190722, end: 20190722
  3. ESLAX [Concomitant]
     Active Substance: ROCURONIUM BROMIDE
     Indication: DUODENAL PERFORATION
     Dosage: UNK UNK, UNKNOWN FREQ.
     Route: 042
     Dates: start: 20190722, end: 20190722
  4. K.C.L. [Concomitant]
     Indication: DUODENAL PERFORATION
     Dosage: UNK UNK, UNKNOWN FREQ.
     Route: 042
     Dates: start: 20190725, end: 20190802
  5. VENILON [Concomitant]
     Active Substance: HUMAN IMMUNOGLOBULIN G
     Indication: DUODENAL PERFORATION
     Dosage: UNK UNK, UNKNOWN FREQ.
     Route: 042
     Dates: start: 20190726, end: 20190728
  6. PARIET [Concomitant]
     Active Substance: RABEPRAZOLE SODIUM
     Indication: PROPHYLAXIS AGAINST GASTROINTESTINAL ULCER
     Route: 048
     Dates: start: 20140816, end: 20190722
  7. NAUZELIN [Concomitant]
     Active Substance: DOMPERIDONE
     Indication: ILEUS
  8. GASTER                             /00661201/ [Concomitant]
     Active Substance: OMEPRAZOLE
     Indication: PROPHYLAXIS AGAINST GASTROINTESTINAL ULCER
     Route: 041
     Dates: start: 20180214, end: 20180301
  9. CALONAL [Concomitant]
     Active Substance: ACETAMINOPHEN
     Indication: LARGE INTESTINE INFECTION
     Dosage: UNK UNK, UNKNOWN FREQ.
     Route: 048
     Dates: start: 20180918, end: 20180918
  10. HIRUDOID                           /00723701/ [Concomitant]
     Active Substance: PENTOSAN POLYSULFATE SODIUM
     Indication: PROPHYLAXIS
     Dosage: UNK UNK, UNKNOWN FREQ.
     Route: 061
     Dates: start: 20181024
  11. NOR?ADRENALIN                      /00127502/ [Concomitant]
     Indication: POSTOPERATIVE RESPIRATORY FAILURE
     Dosage: UNK UNK, UNKNOWN FREQ.
     Route: 042
     Dates: start: 20190726, end: 20190730
  12. MEYLON [Concomitant]
     Active Substance: SODIUM BICARBONATE
     Indication: DUODENAL PERFORATION
     Dosage: UNK UNK, UNKNOWN FREQ.
     Route: 042
     Dates: start: 20190722, end: 20190722
  13. ALBUMIN [Concomitant]
     Active Substance: ALBUMIN HUMAN
     Indication: DUODENAL PERFORATION
     Dosage: UNK UNK, UNKNOWN FREQ.
     Route: 042
     Dates: start: 20190722, end: 20190722
  14. BRIDION [Concomitant]
     Active Substance: SUGAMMADEX
     Indication: DUODENAL PERFORATION
     Dosage: UNK UNK, UNKNOWN FREQ.
     Route: 042
     Dates: start: 20190722, end: 20190722
  15. RECOMODULIN [Concomitant]
     Active Substance: THROMBOMODULIN ALFA
     Indication: DISSEMINATED INTRAVASCULAR COAGULATION
     Dosage: UNK UNK, UNKNOWN FREQ.
     Route: 042
     Dates: start: 20190725, end: 20190727
  16. MUCOFILIN [Concomitant]
     Indication: PROPHYLAXIS
  17. NORVASC [Concomitant]
     Active Substance: AMLODIPINE BESYLATE
     Indication: HYPERTENSION
     Route: 048
     Dates: start: 2014, end: 20190722
  18. RESTAMIN                           /00000401/ [Concomitant]
     Active Substance: DIPHENHYDRAMINE
     Indication: DERMATITIS
     Dosage: ADEQUATE DOSE, AT APPROPRIATE TIME
     Route: 061
     Dates: start: 20170814
  19. SOLDEM 3A [Concomitant]
     Active Substance: CARBOHYDRATES\POTASSIUM CHLORIDE\SODIUM CHLORIDE\SODIUM LACTATE
     Indication: PNEUMONIA ASPIRATION
     Route: 041
     Dates: start: 20180214, end: 20180305
  20. SOLDEM 3A [Concomitant]
     Active Substance: CARBOHYDRATES\POTASSIUM CHLORIDE\SODIUM CHLORIDE\SODIUM LACTATE
     Indication: DUODENAL PERFORATION
  21. CEFTRIAXONE SODIUM HYDRATE [Concomitant]
     Active Substance: CEFTRIAXONE SODIUM
     Indication: ILEUS
     Dosage: UNK UNK, UNKNOWN FREQ.
     Route: 041
     Dates: start: 20180208, end: 20180208
  22. CEFTRIAXONE SODIUM HYDRATE [Concomitant]
     Active Substance: CEFTRIAXONE SODIUM
     Indication: ENTERITIS
  23. LOXONIN [Concomitant]
     Active Substance: LOXOPROFEN SODIUM
     Indication: CERVICAL RADICULOPATHY
     Dosage: UNK UNK, UNKNOWN FREQ.
     Route: 048
     Dates: start: 20190426, end: 20190509
  24. MEDICON                            /00048102/ [Concomitant]
     Active Substance: DEXTROMETHORPHAN HYDROBROMIDE
     Indication: COUGH
     Dosage: UNK UNK, UNKNOWN FREQ.
     Route: 048
     Dates: start: 20190703, end: 20190717
  25. TERPERAN [Concomitant]
     Active Substance: METOCLOPRAMIDE HYDROCHLORIDE
     Indication: DUODENAL PERFORATION
     Dosage: UNK UNK, UNKNOWN FREQ.
     Route: 042
     Dates: start: 20190722, end: 20190722
  26. BICANATE [Concomitant]
     Indication: DUODENAL PERFORATION
     Dosage: UNK UNK, UNKNOWN FREQ.
     Route: 042
     Dates: start: 20190722, end: 20190722
  27. FUROSEMIDE. [Concomitant]
     Active Substance: FUROSEMIDE
     Indication: DUODENAL PERFORATION
     Dosage: UNK UNK, UNKNOWN FREQ.
     Route: 042
     Dates: start: 20190726, end: 20190806
  28. ALBUMINAR [Concomitant]
     Active Substance: ALBUMIN HUMAN
     Indication: NUTRITIONAL CONDITION ABNORMAL
     Dosage: UNK UNK, UNKNOWN FREQ.
     Route: 042
     Dates: start: 20190726, end: 20190806
  29. SENNOSIDE                          /00571902/ [Concomitant]
     Active Substance: SENNOSIDES A AND B
     Indication: CONSTIPATION
     Dosage: UNK UNK, UNKNOWN FREQ.
     Route: 065
     Dates: start: 20180207
  30. SOLDEM 3A [Concomitant]
     Active Substance: CARBOHYDRATES\POTASSIUM CHLORIDE\SODIUM CHLORIDE\SODIUM LACTATE
     Indication: ILEUS
     Dosage: UNK UNK, UNKNOWN FREQ.
     Route: 041
     Dates: start: 20180208, end: 20180208
  31. VITAMEDIN                          /00176001/ [Concomitant]
     Active Substance: CYANOCOBALAMIN\PYRIDOXINE HYDROCHLORIDE\THIAMINE
     Indication: ENTERITIS
     Dosage: UNK UNK, UNKNOWN FREQ.
     Route: 041
     Dates: start: 20190723, end: 20190807
  32. SOLYUGEN F [Concomitant]
     Active Substance: CALCIUM CHLORIDE\POTASSIUM CHLORIDE\SODIUM ACETATE\SODIUM CHLORIDE
     Indication: ILEUS
     Route: 041
     Dates: start: 20180213, end: 20180214
  33. TAZOPIPE [Concomitant]
     Active Substance: PIPERACILLIN SODIUM\TAZOBACTAM SODIUM
     Indication: PNEUMONIA ASPIRATION
     Route: 041
     Dates: start: 20180213, end: 20180215
  34. MIYA?BM [Concomitant]
     Active Substance: CLOSTRIDIUM BUTYRICUM SPORES STRAIN M-55
     Indication: LARGE INTESTINE INFECTION
     Dosage: UNK UNK, UNKNOWN FREQ.
     Route: 048
     Dates: start: 20180918, end: 20180923
  35. XYLOCAINE [Concomitant]
     Active Substance: LIDOCAINE HYDROCHLORIDE
     Indication: DUODENAL PERFORATION
     Dosage: UNK UNK, UNKNOWN FREQ.
     Route: 042
     Dates: start: 20190722, end: 20190722
  36. DIPRIVAN [Concomitant]
     Active Substance: PROPOFOL
     Indication: DUODENAL PERFORATION
     Dosage: UNK UNK, UNKNOWN FREQ.
     Route: 042
     Dates: start: 20190722, end: 20190722
  37. INOVAN                             /00360702/ [Concomitant]
     Active Substance: DOPAMINE HYDROCHLORIDE
     Indication: DUODENAL PERFORATION
     Dosage: UNK UNK, UNKNOWN FREQ.
     Route: 042
     Dates: start: 20190722, end: 20190723
  38. TAKEPRON [Concomitant]
     Active Substance: LANSOPRAZOLE
     Indication: DUODENAL PERFORATION
     Dosage: UNK UNK, UNKNOWN FREQ.
     Route: 042
     Dates: start: 20190722, end: 20190801
  39. BISOPROLOL [Concomitant]
     Active Substance: BISOPROLOL
     Indication: POSTOPERATIVE RESPIRATORY FAILURE
     Dosage: UNK UNK, UNKNOWN FREQ.
     Route: 062
     Dates: start: 20190724, end: 20190816
  40. HUMULIN R [Concomitant]
     Active Substance: INSULIN HUMAN
     Indication: DUODENAL PERFORATION
     Dosage: UNK UNK, UNKNOWN FREQ.
     Route: 058
     Dates: start: 20190731, end: 20190731
  41. NAUZELIN [Concomitant]
     Active Substance: DOMPERIDONE
     Indication: ENTEROCOLITIS
     Dosage: UNK UNK, AS NEEDED
     Route: 054
     Dates: start: 20180208, end: 20180212
  42. SOLYUGEN F [Concomitant]
     Active Substance: CALCIUM CHLORIDE\POTASSIUM CHLORIDE\SODIUM ACETATE\SODIUM CHLORIDE
     Indication: PNEUMONIA ASPIRATION
     Dosage: UNK UNK, UNKNOWN FREQ.
     Route: 041
     Dates: start: 20190722, end: 20190729
  43. SOLYUGEN F [Concomitant]
     Active Substance: CALCIUM CHLORIDE\POTASSIUM CHLORIDE\SODIUM ACETATE\SODIUM CHLORIDE
     Indication: FLUID REPLACEMENT
  44. TAZOPIPE [Concomitant]
     Active Substance: PIPERACILLIN SODIUM\TAZOBACTAM SODIUM
     Indication: PNEUMONIA
     Dosage: UNK UNK, UNKNOWN FREQ.
     Route: 042
     Dates: start: 20190804, end: 20190817
  45. ACETAMINOPHEN. [Concomitant]
     Active Substance: ACETAMINOPHEN
     Indication: PNEUMONIA
  46. OLOPATADINE HYDROCHLORIDE. [Concomitant]
     Active Substance: OLOPATADINE HYDROCHLORIDE
     Indication: DRUG ERUPTION
     Dosage: UNK UNK, UNKNOWN FREQ.
     Route: 048
     Dates: start: 20190318, end: 20190324
  47. NEO SYNESIN [Concomitant]
     Active Substance: PHENYLEPHRINE HYDROCHLORIDE
     Indication: DUODENAL PERFORATION
     Dosage: UNK UNK, UNKNOWN FREQ.
     Route: 042
     Dates: start: 20190722, end: 20190722
  48. FENTANYL. [Concomitant]
     Active Substance: FENTANYL
     Indication: DUODENAL PERFORATION
     Dosage: UNK UNK, UNKNOWN FREQ.
     Route: 042
     Dates: start: 20190722, end: 20190731
  49. NOR?ADRENALIN                      /00127502/ [Concomitant]
     Indication: DUODENAL PERFORATION
     Dosage: UNK UNK, UNKNOWN FREQ.
     Route: 042
     Dates: start: 20190722, end: 20190722
  50. CALCICOL [Concomitant]
     Active Substance: CALCIUM GLUCONATE
     Indication: DUODENAL PERFORATION
     Dosage: UNK UNK, UNKNOWN FREQ.
     Route: 042
     Dates: start: 20190722, end: 20190722
  51. ONOACT [Concomitant]
     Active Substance: LANDIOLOL HYDROCHLORIDE
     Indication: POSTOPERATIVE RESPIRATORY FAILURE
     Dosage: UNK UNK, UNKNOWN FREQ.
     Route: 042
     Dates: start: 20190723, end: 20190726
  52. KENKETU GLOVENIN?I [Concomitant]
     Active Substance: HUMAN IMMUNOGLOBULIN G
     Indication: DUODENAL PERFORATION
     Dosage: UNK UNK, UNKNOWN FREQ.
     Route: 042
     Dates: start: 20190724, end: 20190725
  53. ELNEOPA NO.1 [Concomitant]
     Active Substance: AMINO ACIDS\DEXTROSE\ELECTROLYTES NOS\MINERALS\VITAMINS
     Indication: DUODENAL PERFORATION
     Dosage: UNK UNK, UNKNOWN FREQ.
     Route: 042
     Dates: start: 20190728, end: 20190804
  54. RESTAMIN                           /00000401/ [Concomitant]
     Active Substance: DIPHENHYDRAMINE
     Indication: SKIN DISORDER PROPHYLAXIS
     Dosage: ADEQUATE DOSE, AT APPROPRIATE TIME
     Route: 061
     Dates: start: 2015, end: 20170801
  55. RESTAMIN                           /00000401/ [Concomitant]
     Active Substance: DIPHENHYDRAMINE
     Indication: RASH
     Dosage: ADEQUATE DOSE, AT APPROPRIATE TIME
     Route: 061
     Dates: start: 20170802, end: 20170813
  56. SOLDEM 3A [Concomitant]
     Active Substance: CARBOHYDRATES\POTASSIUM CHLORIDE\SODIUM CHLORIDE\SODIUM LACTATE
     Indication: FLUID REPLACEMENT
     Dosage: UNK UNK, UNKNOWN FREQ.
     Route: 041
     Dates: start: 20190805, end: 20190809
  57. LEVOFLOXACIN. [Concomitant]
     Active Substance: LEVOFLOXACIN
     Indication: LARGE INTESTINE INFECTION
     Dosage: UNK UNK, UNKNOWN FREQ.
     Route: 048
     Dates: start: 20180918, end: 20180922
  58. LEVOFLOXACIN. [Concomitant]
     Active Substance: LEVOFLOXACIN
     Indication: URINARY TRACT INFECTION
     Dosage: UNK UNK, UNKNOWN FREQ.
     Route: 048
     Dates: start: 20190313, end: 20190319
  59. FENTANYL. [Concomitant]
     Active Substance: FENTANYL
     Indication: PROCEDURAL PAIN
  60. K.C.L. [Concomitant]
     Indication: POSTOPERATIVE RESPIRATORY FAILURE
  61. FUROSEMIDE. [Concomitant]
     Active Substance: FUROSEMIDE
     Indication: POSTOPERATIVE RESPIRATORY FAILURE
  62. MUCOFILIN [Concomitant]
     Indication: PNEUMONIA
     Dosage: UNK UNK, UNKNOWN FREQ.
     Route: 055
     Dates: start: 20190731, end: 20190815
  63. FUNGUARD [Concomitant]
     Active Substance: MICAFUNGIN SODIUM
     Indication: FUNGAL INFECTION
     Dosage: UNK UNK, UNKNOWN FREQ.
     Route: 042
     Dates: start: 20190807, end: 20190818
  64. ASP2215 [Suspect]
     Active Substance: GILTERITINIB
     Indication: ACUTE MYELOID LEUKAEMIA
     Route: 048
     Dates: start: 20170703, end: 20180213
  65. AUGMENTIN [Suspect]
     Active Substance: AMOXICILLIN\CLAVULANATE POTASSIUM
     Indication: URINARY TRACT INFECTION
     Dosage: 3 DF/DAY, UNKNOWN FREQ.
     Route: 048
     Dates: start: 20190313, end: 20190318
  66. SOLDEM 3A [Concomitant]
     Active Substance: CARBOHYDRATES\POTASSIUM CHLORIDE\SODIUM CHLORIDE\SODIUM LACTATE
     Indication: ENTERITIS
     Dosage: UNK UNK, UNKNOWN FREQ.
     Route: 041
     Dates: start: 20180213, end: 20180214
  67. VITAMEDIN                          /00176001/ [Concomitant]
     Active Substance: CYANOCOBALAMIN\PYRIDOXINE HYDROCHLORIDE\THIAMINE
     Indication: VITAMIN SUPPLEMENTATION
  68. ACETAMINOPHEN. [Concomitant]
     Active Substance: ACETAMINOPHEN
     Indication: PNEUMONIA ASPIRATION
     Dosage: UNK UNK, UNKNOWN FREQ.
     Route: 041
     Dates: start: 20180213, end: 20180222
  69. METHYCOBAL [Concomitant]
     Active Substance: METHYLCOBALAMIN
     Indication: CERVICAL RADICULOPATHY
     Dosage: UNK UNK, UNKNOWN FREQ.
     Route: 048
     Dates: start: 20190510, end: 20190524
  70. PHYSIO 70 [Concomitant]
     Indication: DUODENAL PERFORATION
     Dosage: UNK UNK, UNKNOWN FREQ.
     Route: 042
     Dates: start: 20190722, end: 20190722
  71. NEUART [Concomitant]
     Active Substance: ANTITHROMBIN III HUMAN
     Indication: DISSEMINATED INTRAVASCULAR COAGULATION
     Dosage: UNK UNK, UNKNOWN FREQ.
     Route: 042
     Dates: start: 20190724, end: 20190727
  72. HEPARIN SODIUM. [Concomitant]
     Active Substance: HEPARIN SODIUM
     Indication: POSTOPERATIVE RESPIRATORY FAILURE
     Dosage: UNK UNK, UNKNOWN FREQ.
     Route: 042
     Dates: start: 20190725, end: 20190806
  73. REBAMIPIDE [Concomitant]
     Active Substance: REBAMIPIDE
     Indication: ABDOMINAL PAIN UPPER
     Dosage: UNK UNK, UNKNOWN FREQ.
     Route: 065
     Dates: start: 20180205
  74. VITAMEDIN                          /00176001/ [Concomitant]
     Active Substance: CYANOCOBALAMIN\PYRIDOXINE HYDROCHLORIDE\THIAMINE
     Indication: ILEUS
     Dosage: UNK UNK, UNKNOWN FREQ.
     Route: 041
     Dates: start: 20180208, end: 20180208
  75. SOLYUGEN F [Concomitant]
     Active Substance: CALCIUM CHLORIDE\POTASSIUM CHLORIDE\SODIUM ACETATE\SODIUM CHLORIDE
     Indication: DUODENAL PERFORATION
  76. ACETAMINOPHEN. [Concomitant]
     Active Substance: ACETAMINOPHEN
     Indication: DUODENAL PERFORATION
     Dosage: UNK UNK, UNKNOWN FREQ.
     Route: 041
     Dates: start: 20190727, end: 20190817
  77. MUCOSTA [Concomitant]
     Active Substance: REBAMIPIDE
     Indication: PROPHYLAXIS AGAINST GASTROINTESTINAL ULCER
     Dosage: UNK UNK, UNKNOWN FREQ.
     Route: 042
     Dates: start: 20190426, end: 20190509
  78. CARBOCISTEINE [Concomitant]
     Active Substance: CARBOCYSTEINE
     Indication: PRODUCTIVE COUGH
     Dosage: UNK UNK, UNKNOWN FREQ.
     Route: 048
     Dates: start: 20190703, end: 20190717
  79. VOLUVEN [Concomitant]
     Active Substance: HYDROXYETHYL STARCH 130/0.4
     Indication: DUODENAL PERFORATION
     Dosage: UNK UNK, UNKNOWN FREQ.
     Route: 042
     Dates: start: 20190722, end: 20190722
  80. MEROPENEM. [Concomitant]
     Active Substance: MEROPENEM
     Indication: DUODENAL PERFORATION
     Dosage: UNK UNK, UNKNOWN FREQ.
     Route: 042
     Dates: start: 20190722, end: 20190801
  81. MEYLON [Concomitant]
     Active Substance: SODIUM BICARBONATE
     Indication: POSTOPERATIVE RESPIRATORY FAILURE
  82. TAKEPRON [Concomitant]
     Active Substance: LANSOPRAZOLE
     Dosage: UNK UNK, UNKNOWN FREQ.
     Route: 042
     Dates: start: 20190804, end: 20190806
  83. HEPARIN SODIUM. [Concomitant]
     Active Substance: HEPARIN SODIUM
     Indication: THROMBOSIS PROPHYLAXIS
  84. BROMHEXINE HYDROCHLORIDE [Concomitant]
     Active Substance: BROMHEXINE HYDROCHLORIDE
     Indication: PROPHYLAXIS
     Dosage: UNK UNK, UNKNOWN FREQ.
     Route: 042
     Dates: start: 20190728, end: 20190731

REACTIONS (28)
  - Duodenal perforation [Fatal]
  - Aspartate aminotransferase increased [Not Recovered/Not Resolved]
  - Eczema [Recovered/Resolved]
  - Drug eruption [Recovered/Resolved]
  - Cervical radiculopathy [Recovered/Resolved]
  - Delirium [Recovering/Resolving]
  - White blood cell count decreased [Not Recovered/Not Resolved]
  - Alanine aminotransferase increased [Not Recovered/Not Resolved]
  - Pneumonia aspiration [Recovered/Resolved]
  - Cough [Not Recovered/Not Resolved]
  - Disseminated intravascular coagulation [Recovered/Resolved]
  - Blood thyroid stimulating hormone increased [Recovered/Resolved]
  - Platelet count decreased [Not Recovered/Not Resolved]
  - Urinary tract infection [Recovered/Resolved]
  - Neutrophil count decreased [Not Recovered/Not Resolved]
  - Skin injury [Recovered/Resolved]
  - Febrile neutropenia [Recovered/Resolved]
  - Blood creatine phosphokinase increased [Recovering/Resolving]
  - Ileus [Recovered/Resolved]
  - Haemorrhagic diathesis [Recovering/Resolving]
  - Fungal infection [Not Recovered/Not Resolved]
  - Nutritional condition abnormal [Not Recovered/Not Resolved]
  - Pneumonia [Not Recovered/Not Resolved]
  - Diarrhoea [Not Recovered/Not Resolved]
  - Wound complication [Recovering/Resolving]
  - Productive cough [Not Recovered/Not Resolved]
  - Pancytopenia [Not Recovered/Not Resolved]
  - Cardiovascular disorder [Recovering/Resolving]

NARRATIVE: CASE EVENT DATE: 20170809
